FAERS Safety Report 9422144 (Version 1)
Quarter: 2013Q3

REPORT INFORMATION
  Report Type: Spontaneous
  Country: US (occurrence: None)
  Receive Date: 20130725
  Receipt Date: 20130725
  Transmission Date: 20140515
  Serious: No
  Sender: FDA-Public Use
  Company Number: None

PATIENT
  Sex: Female
  Weight: 73.6 kg

DRUGS (2)
  1. DEPAKOTE [Suspect]
     Indication: GRAND MAL CONVULSION
     Dosage: 3 CAPS
     Route: 048
     Dates: start: 20060101, end: 20060101
  2. DEPAKOTE [Suspect]
     Indication: CEREBRAL PALSY
     Dosage: 3 CAPS
     Route: 048
     Dates: start: 20060101, end: 20060101

REACTIONS (3)
  - Throat irritation [None]
  - Aphagia [None]
  - Product substitution issue [None]
